FAERS Safety Report 11745719 (Version 1)
Quarter: 2015Q4

REPORT INFORMATION
  Report Type: Spontaneous
  Country: US (occurrence: None)
  Receive Date: 20151116
  Receipt Date: 20151116
  Transmission Date: 20160304
  Serious: Yes (Hospitalization)
  Sender: FDA-Public Use
  Company Number: None

PATIENT
  Age: 11 Year
  Sex: Male
  Weight: 47.63 kg

DRUGS (5)
  1. ZIPRASIDONE HCL [Suspect]
     Active Substance: ZIPRASIDONE HYDROCHLORIDE
     Indication: BIPOLAR DISORDER
     Route: 048
  2. MELOTION [Concomitant]
  3. ZIPRASIDONE. [Concomitant]
     Active Substance: ZIPRASIDONE
  4. DEXTRINE [Concomitant]
  5. LEXPRO [Concomitant]

REACTIONS (3)
  - Hypersomnia [None]
  - VIIth nerve paralysis [None]
  - Respiratory arrest [None]

NARRATIVE: CASE EVENT DATE: 20151114
